FAERS Safety Report 16306808 (Version 1)
Quarter: 2019Q2

REPORT INFORMATION
  Report Type: Spontaneous
  Country: US (occurrence: US)
  Receive Date: 20190513
  Receipt Date: 20190513
  Transmission Date: 20190711
  Serious: No
  Sender: FDA-Public Use
  Company Number: PHEH2019US019960

PATIENT
  Sex: Female
  Weight: 97.5 kg

DRUGS (2)
  1. ILARIS [Suspect]
     Active Substance: CANAKINUMAB
     Indication: ARTHRITIS
  2. ILARIS [Suspect]
     Active Substance: CANAKINUMAB
     Indication: PYREXIA
     Dosage: UNK UNK, Q2W
     Route: 058

REACTIONS (1)
  - Weight increased [Unknown]
